FAERS Safety Report 7223233-8 (Version None)
Quarter: 2011Q1

REPORT INFORMATION
  Report Type: 
  Country: None (occurrence: None)
  Receive Date: 20110112
  Receipt Date: 20100311
  Transmission Date: 20110831
  Serious: No
  Sender: FDA-Public Use
  Company Number: US-ALLERGAN-1003253US

PATIENT
  Sex: Male

DRUGS (6)
  1. OPTIVE [Concomitant]
  2. ASPIRIN [Concomitant]
  3. FLOMAX [Concomitant]
  4. RESTASIS [Suspect]
     Indication: DRY EYE
     Dosage: UNK
     Route: 047
  5. NEURONTIN [Concomitant]
  6. PLAVIX [Concomitant]

REACTIONS (2)
  - OCULAR HYPERAEMIA [None]
  - EYE IRRITATION [None]
